FAERS Safety Report 6528789-6 (Version None)
Quarter: 2010Q1

REPORT INFORMATION
  Report Type: 
  Country: None (occurrence: None)
  Receive Date: 20100106
  Receipt Date: 20091231
  Transmission Date: 20100710
  Serious: Yes (Other)
  Sender: FDA-Public Use
  Company Number: CA-B.I. PHARMACEUTICALS,INC./RIDGEFIELD-2010-CN-00007CN

PATIENT
  Age: 52 Year
  Sex: Male

DRUGS (17)
  1. VIRAMUNE [Suspect]
     Route: 065
  2. ZERIT [Suspect]
     Route: 065
  3. ZIAGEN [Suspect]
     Route: 065
  4. ZIDOVUDINE [Suspect]
     Route: 065
  5. VIREAD [Suspect]
     Route: 065
  6. VIDEX EC [Suspect]
     Route: 065
  7. SAQUINAVIR [Suspect]
     Route: 065
  8. RITONAVIR [Suspect]
     Route: 065
  9. LAMIVUDINE [Suspect]
     Route: 065
  10. KALETRA [Suspect]
     Route: 065
  11. FUZEON [Suspect]
     Route: 058
  12. CRIXIVAN [Suspect]
     Route: 065
  13. INTELENCE [Suspect]
     Route: 065
  14. ISENTRESS [Suspect]
     Route: 065
  15. PREZISTA [Suspect]
     Route: 065
  16. RESCRIPTOR [Suspect]
     Route: 065
  17. SUSTIVA [Suspect]
     Route: 065

REACTIONS (4)
  - EYELID PTOSIS [None]
  - LIPODYSTROPHY ACQUIRED [None]
  - MITOCHONDRIAL TOXICITY [None]
  - PROGRESSIVE EXTERNAL OPHTHALMOPLEGIA [None]
